FAERS Safety Report 4476696-5 (Version None)
Quarter: 2004Q4

REPORT INFORMATION
  Report Type: 
  Country: None (occurrence: None)
  Receive Date: 20041015
  Receipt Date: 20041015
  Transmission Date: 20050328
  Serious: Yes (Hospitalization)
  Sender: FDA-Public Use
  Company Number: None

PATIENT
  Age: 44 Year
  Sex: Male
  Weight: 51.7 kg

DRUGS (9)
  1. SULFAMETHOXAZOLE + TRIMETHOPRIM [Suspect]
     Indication: INFECTION PROPHYLAXIS
     Dosage: 800/160 MG QD ORAL
     Route: 048
  2. CLARITHROMYCIN [Concomitant]
  3. ACETAMINOPHEN [Concomitant]
  4. EPOETIN ALPHA [Concomitant]
  5. ETHAMBUTOL [Concomitant]
  6. MEGESTROL [Concomitant]
  7. OMEPRAZOLE [Concomitant]
  8. PHENYTOIN [Concomitant]
  9. PROMETHAZINE [Concomitant]

REACTIONS (5)
  - ABDOMINAL PAIN [None]
  - DYSPHAGIA [None]
  - ELECTROCARDIOGRAM T WAVE PEAKED [None]
  - HYPERKALAEMIA [None]
  - MARKEDLY REDUCED DIETARY INTAKE [None]
